FAERS Safety Report 19909460 (Version 1)
Quarter: 2021Q4

REPORT INFORMATION
  Report Type: Spontaneous
  Country: US (occurrence: US)
  Receive Date: 20211001
  Receipt Date: 20211001
  Transmission Date: 20220304
  Serious: No
  Sender: FDA-Public Use
  Company Number: US-AMARIN PHARMA, INC.-2021AMR000380

PATIENT
  Age: 58 Year
  Sex: Female
  Weight: 65.83 kg

DRUGS (1)
  1. VASCEPA [Suspect]
     Active Substance: ICOSAPENT ETHYL
     Indication: Cardiovascular event prophylaxis
     Route: 048
     Dates: start: 2020, end: 20200524

REACTIONS (3)
  - Gastrooesophageal reflux disease [Recovered/Resolved]
  - Therapy interrupted [Unknown]
  - Product odour abnormal [Unknown]

NARRATIVE: CASE EVENT DATE: 20210524
